FAERS Safety Report 4421900-2 (Version None)
Quarter: 2004Q3

REPORT INFORMATION
  Report Type: 
  Country: None (occurrence: None)
  Receive Date: 20040709
  Receipt Date: 20030626
  Transmission Date: 20050211
  Serious: Yes (Other)
  Sender: FDA-Public Use
  Company Number: US-SHR-03-009969

PATIENT
  Age: 73 Year
  Sex: Male
  Weight: 81.6 kg

DRUGS (1)
  1. ULTRAVIST 370 [Suspect]
     Indication: ANGIOGRAM
     Dosage: 140 ML,1 DOSE, INTRAVENOUS
     Route: 042
     Dates: start: 20030620, end: 20030620

REACTIONS (3)
  - EXTRAVASATION [None]
  - INJECTION SITE OEDEMA [None]
  - INJECTION SITE PAIN [None]
